FAERS Safety Report 24772581 (Version 2)
Quarter: 2025Q1

REPORT INFORMATION
  Report Type: Spontaneous
  Country: US (occurrence: US)
  Receive Date: 20241225
  Receipt Date: 20250128
  Transmission Date: 20250408
  Serious: No
  Sender: SANOFI AVENTIS
  Company Number: US-SA-2024SA378540

PATIENT
  Age: 75 Year
  Sex: Female

DRUGS (3)
  1. DUPIXENT [Suspect]
     Active Substance: DUPILUMAB
     Indication: Eczema
     Route: 058
     Dates: start: 202409, end: 202409
  2. DUPIXENT [Suspect]
     Active Substance: DUPILUMAB
     Indication: Pruritus
     Dosage: 300 MG, QOW
     Route: 058
     Dates: start: 20240829
  3. DUPIXENT [Suspect]
     Active Substance: DUPILUMAB
     Indication: Rash

REACTIONS (5)
  - Pruritus [Unknown]
  - Arthralgia [Unknown]
  - Rash [Unknown]
  - Product use in unapproved indication [Unknown]
  - Therapeutic response shortened [Unknown]

NARRATIVE: CASE EVENT DATE: 20240101
